FAERS Safety Report 22180592 (Version 1)
Quarter: 2023Q2

REPORT INFORMATION
  Report Type: Spontaneous
  Country: US (occurrence: US)
  Receive Date: 20230406
  Receipt Date: 20230406
  Transmission Date: 20230722
  Serious: Yes (Other)
  Sender: FDA-Public Use
  Company Number: US-SUN PHARMACEUTICAL INDUSTRIES LTD-2023R1-383290

PATIENT
  Sex: Female

DRUGS (2)
  1. ISOTRETINOIN [Suspect]
     Active Substance: ISOTRETINOIN
     Indication: Acne cystic
     Dosage: 40 MILLIGRAM
     Route: 048
     Dates: start: 20220808
  2. ACCUTANE [Suspect]
     Active Substance: ISOTRETINOIN
     Indication: Acne cystic
     Dosage: 30 MILLIGRAM
     Route: 065
     Dates: start: 20220808

REACTIONS (6)
  - Haemorrhage [Unknown]
  - Dry skin [Unknown]
  - Haemoglobin decreased [Unknown]
  - Lip dry [Unknown]
  - Unevaluable event [Unknown]
  - Therapeutic product effect incomplete [Unknown]

NARRATIVE: CASE EVENT DATE: 20220101
